FAERS Safety Report 24325024 (Version 1)
Quarter: 2024Q3

REPORT INFORMATION
  Report Type: Spontaneous
  Country: CA (occurrence: CA)
  Receive Date: 20240916
  Receipt Date: 20240916
  Transmission Date: 20241017
  Serious: Yes (Hospitalization, Other)
  Sender: NOVARTIS
  Company Number: CA-002147023-NVSC2024CA183286

PATIENT
  Age: 39 Year
  Sex: Female

DRUGS (1)
  1. KESIMPTA [Suspect]
     Active Substance: OFATUMUMAB
     Indication: Product used for unknown indication
     Dosage: UNK, QMO (1 EVERY 1 MONTHS)
     Route: 058

REACTIONS (3)
  - Nephrolithiasis [Recovering/Resolving]
  - Sepsis [Recovering/Resolving]
  - Urinary tract obstruction [Recovering/Resolving]
